FAERS Safety Report 5959116-0 (Version None)
Quarter: 2008Q4

REPORT INFORMATION
  Report Type: 
  Country: None (occurrence: None)
  Receive Date: 20081120
  Receipt Date: 20080102
  Transmission Date: 20090506
  Serious: No
  Sender: FDA-Public Use
  Company Number: A0701013A

PATIENT
  Age: 56 Year
  Sex: Female

DRUGS (3)
  1. WELLBUTRIN SR [Suspect]
     Indication: DEPRESSION
     Dates: start: 20071001
  2. SYNTHROID [Concomitant]
  3. TEPAZEPAN [Concomitant]

REACTIONS (1)
  - AGEUSIA [None]
